FAERS Safety Report 13615530 (Version 3)
Quarter: 2017Q2

REPORT INFORMATION
  Report Type: Spontaneous
  Country: IT (occurrence: IT)
  Receive Date: 20170606
  Receipt Date: 20170616
  Transmission Date: 20170830
  Serious: Yes (Death, Other)
  Sender: FDA-Public Use
  Company Number: IT-PFIZER INC-2017231166

PATIENT
  Age: 35 Year
  Sex: Female

DRUGS (2)
  1. ATENOLOL. [Suspect]
     Active Substance: ATENOLOL
     Indication: TACHYCARDIA
     Dosage: UNK
  2. VERAPAMIL [Interacting]
     Active Substance: VERAPAMIL HYDROCHLORIDE
     Dosage: UNK

REACTIONS (6)
  - Cardiogenic shock [Fatal]
  - Toxicity to various agents [Fatal]
  - Accidental overdose [Fatal]
  - Oxygen saturation decreased [Fatal]
  - Loss of consciousness [Fatal]
  - Drug interaction [Fatal]
